FAERS Safety Report 8512422-8 (Version None)
Quarter: 2012Q3

REPORT INFORMATION
  Report Type: 
  Country: None (occurrence: None)
  Receive Date: 20120716
  Receipt Date: 20120704
  Transmission Date: 20120928
  Serious: Yes (Death)
  Sender: FDA-Public Use
  Company Number: ES-ROCHE-1084312

PATIENT
  Sex: Female
  Weight: 68 kg

DRUGS (9)
  1. OXALIPLATIN [Suspect]
     Indication: GASTRIC CANCER
     Route: 042
     Dates: start: 20110915
  2. CANDESARTAN [Concomitant]
     Dates: end: 20120702
  3. HERCEPTIN [Suspect]
     Indication: GASTRIC CANCER
     Dosage: LAST DOSE PRIOR TO SAE: 11 JUNE 2012
     Route: 042
     Dates: start: 20110915, end: 20120702
  4. FUROSEMIDE [Concomitant]
     Dates: end: 20120702
  5. HYDROCHLOROTHIAZIDE [Concomitant]
     Dates: end: 20120702
  6. VENLAFAXINE [Concomitant]
     Dates: end: 20120702
  7. XELODA [Suspect]
     Indication: GASTRIC CANCER
     Route: 048
     Dates: start: 20110915
  8. BROMAZEPAM [Concomitant]
     Dates: end: 20120702
  9. FLUTICASONE PROPIONATE/SALMETEROL [Concomitant]
     Dosage: AS REQUIRED
     Dates: end: 20120702

REACTIONS (2)
  - CARDIOGENIC SHOCK [None]
  - SEPTIC SHOCK [None]
